FAERS Safety Report 13860007 (Version 1)
Quarter: 2017Q3

REPORT INFORMATION
  Report Type: Spontaneous
  Country: IL (occurrence: IL)
  Receive Date: 20170811
  Receipt Date: 20170811
  Transmission Date: 20171127
  Serious: Yes (Death, Hospitalization, Other)
  Sender: FDA-Public Use
  Company Number: IL-CELGENEUS-ISR-20170709708

PATIENT
  Age: 74 Year
  Sex: Female

DRUGS (3)
  1. MABTHERA [Concomitant]
     Active Substance: RITUXIMAB
     Indication: DIFFUSE LARGE B-CELL LYMPHOMA STAGE IV
     Route: 065
     Dates: start: 201703
  2. REVLIMID [Suspect]
     Active Substance: LENALIDOMIDE
     Indication: CENTRAL NERVOUS SYSTEM LYMPHOMA
     Route: 048
     Dates: start: 20170703, end: 201707
  3. MABTHERA [Concomitant]
     Active Substance: RITUXIMAB
     Dosage: COMBINED THERAPY WITH REVLIMID
     Route: 065
     Dates: start: 2017

REACTIONS (2)
  - Brain oedema [Fatal]
  - General physical health deterioration [Fatal]

NARRATIVE: CASE EVENT DATE: 201707
